FAERS Safety Report 13850504 (Version 3)
Quarter: 2017Q4

REPORT INFORMATION
  Report Type: Spontaneous
  Country: FR (occurrence: FR)
  Receive Date: 20170809
  Receipt Date: 20171024
  Transmission Date: 20180320
  Serious: Yes (Hospitalization)
  Sender: FDA-Public Use
  Company Number: PHHY2017FR116955

PATIENT
  Age: 63 Year
  Sex: Male
  Weight: 105 kg

DRUGS (4)
  1. BSS [Suspect]
     Active Substance: CALCIUM CHLORIDE\MAGNESIUM CHLORIDE\POTASSIUM CHLORIDE\SODIUM ACETATE\SODIUM CHLORIDE\SODIUM CITRATE
     Indication: EYE IRRIGATION
     Route: 031
  2. BETADINE [Concomitant]
     Active Substance: POVIDONE-IODINE
     Indication: INTRAOPERATIVE CARE
     Dosage: UNK
     Route: 047
     Dates: start: 20170628
  3. MYDRIATICUM [Concomitant]
     Active Substance: TROPICAMIDE
     Indication: PRODUCT USED FOR UNKNOWN INDICATION
     Dosage: UNK
     Route: 065
     Dates: start: 20170628, end: 20170628
  4. OXYBUPROCAINE [Concomitant]
     Active Substance: BENOXINATE
     Indication: PRODUCT USED FOR UNKNOWN INDICATION
     Dosage: UNK
     Route: 065
     Dates: start: 20170628, end: 20170628

REACTIONS (1)
  - Toxic anterior segment syndrome [Recovering/Resolving]

NARRATIVE: CASE EVENT DATE: 20170629
